FAERS Safety Report 8228479-8 (Version None)
Quarter: 2012Q1

REPORT INFORMATION
  Report Type: 
  Country: None (occurrence: None)
  Receive Date: 20120322
  Receipt Date: 20110531
  Transmission Date: 20120608
  Serious: Yes (Other)
  Sender: FDA-Public Use
  Company Number: US-BRISTOL-MYERS SQUIBB COMPANY-15800337

PATIENT
  Age: 57 Year
  Sex: Male

DRUGS (2)
  1. HYDROCORTISONE [Concomitant]
     Indication: PREMEDICATION
     Dosage: LIQ
     Dates: start: 20110525, end: 20110525
  2. ERBITUX [Suspect]
     Dosage: LIQ
     Dates: start: 20110525, end: 20110525

REACTIONS (3)
  - OROPHARYNGEAL PAIN [None]
  - ERYTHEMA [None]
  - PRURITUS GENERALISED [None]
